FAERS Safety Report 4993671-2 (Version None)
Quarter: 2006Q2

REPORT INFORMATION
  Report Type: 
  Country: None (occurrence: None)
  Receive Date: 20060505
  Receipt Date: 20060126
  Transmission Date: 20061013
  Serious: Yes (Hospitalization)
  Sender: FDA-Public Use
  Company Number: US-MERCK-0601USA03590

PATIENT
  Age: 69 Year
  Sex: Female
  Weight: 68 kg

DRUGS (9)
  1. VIOXX [Suspect]
     Indication: BACK PAIN
     Route: 048
     Dates: start: 20000609, end: 20020221
  2. VIOXX [Suspect]
     Indication: OSTEOARTHRITIS
     Route: 048
     Dates: start: 20000609, end: 20020221
  3. PROZAC [Concomitant]
     Route: 065
  4. PREMPRO [Concomitant]
     Route: 065
  5. FEMHRT [Concomitant]
     Route: 065
  6. CEPHALEXIN [Concomitant]
     Route: 065
  7. ELOCON [Concomitant]
     Route: 065
  8. TEMOVATE [Concomitant]
     Route: 065
  9. SYNTHROID [Concomitant]
     Route: 065
     Dates: start: 19991101

REACTIONS (6)
  - BLOOD CHOLESTEROL INCREASED [None]
  - CEREBROVASCULAR ACCIDENT [None]
  - HYPERSENSITIVITY [None]
  - HYPERTENSION [None]
  - LUMBAR SPINAL STENOSIS [None]
  - OEDEMA [None]
